FAERS Safety Report 5028504-1 (Version None)
Quarter: 2006Q2

REPORT INFORMATION
  Report Type: 
  Country: None (occurrence: None)
  Receive Date: 20060617
  Receipt Date: 20060510
  Transmission Date: 20061013
  Serious: Yes (Hospitalization)
  Sender: FDA-Public Use
  Company Number: US-SANOFI-SYNTHELABO-F03200600095

PATIENT
  Sex: Female

DRUGS (3)
  1. GEMCITABINE [Suspect]
     Route: 042
     Dates: start: 20060403
  2. AVASTIN [Suspect]
     Route: 042
     Dates: start: 20060403
  3. OXALIPLATIN [Suspect]
     Indication: ADENOCARCINOMA PANCREAS
     Route: 042
     Dates: start: 20060404, end: 20060404

REACTIONS (8)
  - ALANINE AMINOTRANSFERASE INCREASED [None]
  - ASPARTATE AMINOTRANSFERASE INCREASED [None]
  - BACK PAIN [None]
  - BLOOD GLUCOSE INCREASED [None]
  - DIZZINESS [None]
  - HEADACHE [None]
  - REVERSIBLE POSTERIOR LEUKOENCEPHALOPATHY SYNDROME [None]
  - SYNCOPE [None]
